FAERS Safety Report 13581830 (Version 1)
Quarter: 2017Q2

REPORT INFORMATION
  Report Type: Report from Study
  Country: PL (occurrence: PL)
  Receive Date: 20170525
  Receipt Date: 20170525
  Transmission Date: 20170830
  Serious: Yes (Hospitalization)
  Sender: FDA-Public Use
  Company Number: PL-UCBSA-2017019654

PATIENT
  Age: 44 Year
  Sex: Female
  Weight: 65 kg

DRUGS (1)
  1. CERTOLIZUMAB PEGOL [Suspect]
     Active Substance: CERTOLIZUMAB PEGOL
     Indication: PSORIASIS
     Dosage: 200 MG, EV 2 WEEKS(QOW) 24 DOSES
     Route: 058
     Dates: start: 20160614

REACTIONS (3)
  - Appendicitis [Recovered/Resolved]
  - Ovarian abscess [Recovered/Resolved]
  - Fallopian tube disorder [Recovered/Resolved]

NARRATIVE: CASE EVENT DATE: 20170503
